FAERS Safety Report 4552724-3 (Version None)
Quarter: 2005Q1

REPORT INFORMATION
  Report Type: 
  Country: None (occurrence: None)
  Receive Date: 20050114
  Receipt Date: 20050104
  Transmission Date: 20050727
  Serious: Yes (Hospitalization)
  Sender: FDA-Public Use
  Company Number: FR-AMGEN-UK105963

PATIENT
  Age: 48 Year
  Sex: Female
  Weight: 84 kg

DRUGS (3)
  1. NEUPOGEN [Suspect]
     Indication: CHEMOTHERAPY
     Route: 042
     Dates: start: 20020915
  2. FARMORUBICIN [Suspect]
     Route: 042
     Dates: start: 20020915
  3. TAXOTERE [Suspect]
     Route: 042
     Dates: start: 20020915

REACTIONS (3)
  - HAEMANGIOMA [None]
  - HEPATIC LESION [None]
  - SPLENIC LESION [None]
